FAERS Safety Report 8295237-8 (Version None)
Quarter: 2012Q2

REPORT INFORMATION
  Report Type: 
  Country: None (occurrence: None)
  Receive Date: 20120418
  Receipt Date: 20120406
  Transmission Date: 20120825
  Serious: Yes (Hospitalization)
  Sender: FDA-Public Use
  Company Number: US-BAXTER-2012BAX001985

PATIENT
  Sex: Male

DRUGS (3)
  1. IRON [Suspect]
     Route: 065
  2. DIANEAL [Suspect]
     Route: 033
  3. DIANEAL [Suspect]
     Indication: PERITONEAL DIALYSIS
     Route: 033

REACTIONS (3)
  - FAECES DISCOLOURED [None]
  - DIARRHOEA [None]
  - ASTHENIA [None]
